FAERS Safety Report 6034563-X (Version None)
Quarter: 2009Q1

REPORT INFORMATION
  Report Type: 
  Country: None (occurrence: None)
  Receive Date: 20090112
  Receipt Date: 20090108
  Transmission Date: 20090719
  Serious: Yes (Death)
  Sender: FDA-Public Use
  Company Number: ID-ROCHE-606716

PATIENT

DRUGS (1)
  1. TORADOL [Suspect]
     Indication: HEADACHE
     Route: 048

REACTIONS (1)
  - DEATH [None]
